FAERS Safety Report 10270163 (Version 1)
Quarter: 2014Q2

REPORT INFORMATION
  Report Type: Spontaneous
  Country: US (occurrence: None)
  Receive Date: 20140626
  Receipt Date: 20140626
  Transmission Date: 20141212
  Serious: Yes (Disabling)
  Sender: FDA-Public Use
  Company Number: None

PATIENT
  Age: 78 Year
  Sex: Female
  Weight: 65.32 kg

DRUGS (9)
  1. BONIVA [Suspect]
     Indication: OSTEOPOROSIS
     Route: 048
     Dates: start: 20140407, end: 20140507
  2. FELODIPINE [Concomitant]
  3. SYNTHROID [Concomitant]
  4. CLARITIN D [Concomitant]
  5. CELEBREX [Concomitant]
  6. HYPOCHLOROTHIAZIDE [Concomitant]
  7. POTASSIUM CHLORIDE [Concomitant]
  8. CENTRUM SILVER [Suspect]
  9. VIACTIV [Concomitant]

REACTIONS (4)
  - Limb discomfort [None]
  - Nausea [None]
  - Bruxism [None]
  - Tooth disorder [None]
